FAERS Safety Report 4667985-X (Version None)
Quarter: 2005Q2

REPORT INFORMATION
  Report Type: 
  Country: None (occurrence: None)
  Receive Date: 20050520
  Receipt Date: 20050512
  Transmission Date: 20051028
  Serious: Yes (Other)
  Sender: FDA-Public Use
  Company Number: US-KINGPHARMUSA00001-K200500628

PATIENT
  Age: 31 Year
  Sex: Female

DRUGS (1)
  1. SEPTRA [Suspect]

REACTIONS (14)
  - BACTERIAL INFECTION [None]
  - ELECTROCARDIOGRAM QT PROLONGED [None]
  - ENDOMETRIAL DISORDER [None]
  - HYPERKALAEMIA [None]
  - HYPERTENSION [None]
  - LOSS OF CONSCIOUSNESS [None]
  - MELAENA [None]
  - MYOCARDIAL INFARCTION [None]
  - PAIN IN EXTREMITY [None]
  - PERICARDITIS [None]
  - RENAL FAILURE [None]
  - SEPTIC SHOCK [None]
  - URINARY TRACT INFECTION [None]
  - VOMITING [None]
